FAERS Safety Report 7571647-9 (Version None)
Quarter: 2011Q2

REPORT INFORMATION
  Report Type: 
  Country: None (occurrence: None)
  Receive Date: 20110624
  Receipt Date: 20110620
  Transmission Date: 20111010
  Serious: Yes (Hospitalization)
  Sender: FDA-Public Use
  Company Number: US-MERCK-1106USA00537

PATIENT
  Age: 26 Year
  Sex: Female

DRUGS (1)
  1. SINGULAIR [Suspect]
     Indication: ASTHMA
     Route: 048
     Dates: start: 20020101

REACTIONS (5)
  - MUSCULAR WEAKNESS [None]
  - BLADDER DYSFUNCTION [None]
  - JAW DISORDER [None]
  - ARTHROPATHY [None]
  - FACIAL PARESIS [None]
